FAERS Safety Report 16396237 (Version 5)
Quarter: 2019Q3

REPORT INFORMATION
  Report Type: Spontaneous
  Country: JP (occurrence: JP)
  Receive Date: 20190605
  Receipt Date: 20190826
  Transmission Date: 20191004
  Serious: Yes (Life-Threatening, Hospitalization)
  Sender: FDA-Public Use
  Company Number: JP-ABBVIE-19P-087-2804661-00

PATIENT
  Age: 16 Year
  Sex: Male
  Weight: 64 kg

DRUGS (8)
  1. REBAMIPIDE [Concomitant]
     Active Substance: REBAMIPIDE
     Indication: GASTRITIS
     Route: 048
     Dates: start: 201511, end: 20170430
  2. HUMIRA [Suspect]
     Active Substance: ADALIMUMAB
     Indication: JUVENILE IDIOPATHIC ARTHRITIS
     Route: 058
     Dates: start: 20160413, end: 20170118
  3. METHOTREXATE. [Suspect]
     Active Substance: METHOTREXATE
     Indication: JUVENILE IDIOPATHIC ARTHRITIS
     Route: 048
     Dates: start: 201511, end: 20170430
  4. DOMPERIDONE [Concomitant]
     Active Substance: DOMPERIDONE
     Indication: NAUSEA
     Route: 048
     Dates: start: 201511, end: 20170430
  5. METHOTREXATE. [Suspect]
     Active Substance: METHOTREXATE
     Indication: GASTRITIS
  6. PREDNISOLONE. [Concomitant]
     Active Substance: PREDNISOLONE
     Indication: ARTHRALGIA
     Route: 048
     Dates: start: 201511
  7. IBUPROFEN. [Concomitant]
     Active Substance: IBUPROFEN
     Indication: GASTRITIS
     Route: 048
     Dates: start: 201511, end: 20170430
  8. ACTEMRA [Suspect]
     Active Substance: TOCILIZUMAB
     Indication: ARTHRALGIA
     Route: 050
     Dates: start: 20170207, end: 20170912

REACTIONS (3)
  - Acute myeloid leukaemia [Recovered/Resolved]
  - Myelodysplastic syndrome [Recovered/Resolved]
  - Gastrointestinal haemorrhage [Recovered/Resolved]

NARRATIVE: CASE EVENT DATE: 20170430
